FAERS Safety Report 10389356 (Version 1)
Quarter: 2014Q3

REPORT INFORMATION
  Report Type: Spontaneous
  Country: IN (occurrence: None)
  Receive Date: 20140812
  Receipt Date: 20140812
  Transmission Date: 20150326
  Serious: Yes (Disabling, Other)
  Sender: FDA-Public Use
  Company Number: VAL_03251_2014

PATIENT
  Age: 32 Year
  Sex: Female

DRUGS (1)
  1. CARBAMAZEPINE (CARBAMAZEPINE) [Suspect]
     Active Substance: CARBAMAZEPINE
     Indication: MENTAL DISORDER
     Dosage: DF

REACTIONS (8)
  - Abasia [None]
  - Vitamin D decreased [None]
  - Gait disturbance [None]
  - Blood calcium decreased [None]
  - Osteomalacia [None]
  - Muscular weakness [None]
  - Pain in extremity [None]
  - Hyperparathyroidism secondary [None]
